FAERS Safety Report 20351414 (Version 1)
Quarter: 2022Q1

REPORT INFORMATION
  Report Type: Spontaneous
  Country: US (occurrence: None)
  Receive Date: 20220118
  Receipt Date: 20220118
  Transmission Date: 20220423
  Serious: Yes (Other)
  Sender: FDA-Public Use
  Company Number: None

PATIENT
  Age: 40 Year
  Sex: Female
  Weight: 181.8 kg

DRUGS (16)
  1. HIZENTRA [Suspect]
     Active Substance: HUMAN IMMUNOGLOBULIN G
     Indication: Selective polysaccharide antibody deficiency
     Dosage: OTHER QUANTITY : 22 ML;?OTHER FREQUENCY : ONCE PER WEEK;?
     Route: 058
     Dates: start: 20220118, end: 20220118
  2. HIZENTRA [Suspect]
     Active Substance: HUMAN IMMUNOGLOBULIN G
     Indication: Immunodeficiency common variable
  3. ZYRTEC [Concomitant]
     Active Substance: CETIRIZINE HYDROCHLORIDE
  4. LANSOPRAZOLE [Concomitant]
     Active Substance: LANSOPRAZOLE
  5. ZOLOFT [Concomitant]
     Active Substance: SERTRALINE HYDROCHLORIDE
  6. BUSPAR [Concomitant]
     Active Substance: BUSPIRONE HYDROCHLORIDE
  7. IRBESARTAN [Concomitant]
     Active Substance: IRBESARTAN
  8. FUROSEMIDE [Concomitant]
     Active Substance: FUROSEMIDE
  9. FAMOTIDINE [Concomitant]
     Active Substance: FAMOTIDINE
  10. POTASSIUM [Concomitant]
     Active Substance: POTASSIUM
  11. VITAMIN D NOS [Concomitant]
     Active Substance: VITAMIN D NOS
  12. PROPRANOLOL [Concomitant]
     Active Substance: PROPRANOLOL HYDROCHLORIDE
  13. BREO ELLIPTA [Concomitant]
     Active Substance: FLUTICASONE FUROATE\VILANTEROL TRIFENATATE
  14. NASONEX [Concomitant]
     Active Substance: MOMETASONE FUROATE
  15. VICTOZA [Concomitant]
     Active Substance: LIRAGLUTIDE
  16. IBUPROFEN [Concomitant]

REACTIONS (4)
  - Injection site pruritus [None]
  - Injection site erythema [None]
  - Injection site swelling [None]
  - Injection site warmth [None]

NARRATIVE: CASE EVENT DATE: 20220118
